FAERS Safety Report 12190957 (Version 2)
Quarter: 2016Q1

REPORT INFORMATION
  Report Type: Spontaneous
  Country: CA (occurrence: CA)
  Receive Date: 20160318
  Receipt Date: 20160324
  Transmission Date: 20160526
  Serious: Yes (Hospitalization, Other)
  Sender: FDA-Public Use
  Company Number: CA-BEH-2016060365

PATIENT
  Age: 6 Month
  Sex: Female

DRUGS (3)
  1. CYCLOSPORINE. [Concomitant]
     Active Substance: CYCLOSPORINE
     Dosage: DAILY
  2. PREDNISONE. [Concomitant]
     Active Substance: PREDNISONE
     Dosage: DAILY
  3. PRIVIGEN [Suspect]
     Active Substance: HUMAN IMMUNOGLOBULIN G
     Indication: COMBINED IMMUNODEFICIENCY
     Dates: start: 20160226, end: 20160226

REACTIONS (5)
  - Nausea [Recovered/Resolved]
  - Asthenia [Recovered/Resolved]
  - Meningitis aseptic [Recovered/Resolved]
  - Vomiting [Recovered/Resolved]
  - Fontanelle bulging [Recovered/Resolved]

NARRATIVE: CASE EVENT DATE: 20160226
